FAERS Safety Report 9192570 (Version 1)
Quarter: 2013Q1

REPORT INFORMATION
  Report Type: Spontaneous
  Country: US (occurrence: None)
  Receive Date: 20120703
  Receipt Date: 20120703
  Transmission Date: 20140127
  Serious: No
  Sender: FDA-Public Use
  Company Number: PHEH2012US005305

PATIENT
  Sex: Male
  Weight: 91.6 kg

DRUGS (2)
  1. GILENYA [Suspect]
     Indication: RELAPSING-REMITTING MULTIPLE SCLEROSIS
     Route: 048
  2. VITAMIN D (ERGOCALCIFEROL) [Concomitant]

REACTIONS (4)
  - Irritability [None]
  - Fatigue [None]
  - Malaise [None]
  - Drug intolerance [None]
